FAERS Safety Report 8016147-7 (Version None)
Quarter: 2011Q4

REPORT INFORMATION
  Report Type: 
  Country: None (occurrence: None)
  Receive Date: 20111230
  Receipt Date: 20111219
  Transmission Date: 20120403
  Serious: Yes (Hospitalization)
  Sender: FDA-Public Use
  Company Number: KR-ROCHE-1025462

PATIENT
  Age: 46 Year
  Sex: Male

DRUGS (2)
  1. NAPROXEN [Suspect]
     Indication: NASOPHARYNGITIS
     Route: 065
  2. AZELASTINE HCL [Suspect]
     Indication: NASOPHARYNGITIS
     Route: 065

REACTIONS (1)
  - OESOPHAGEAL DISORDER [None]
